FAERS Safety Report 5021291-2 (Version None)
Quarter: 2006Q2

REPORT INFORMATION
  Report Type: 
  Country: None (occurrence: None)
  Receive Date: 20060608
  Receipt Date: 20060504
  Transmission Date: 20061013
  Serious: Yes (Other)
  Sender: FDA-Public Use
  Company Number: FR-GLAXOSMITHKLINE-B0423230A

PATIENT
  Age: 53 Year
  Sex: Female

DRUGS (3)
  1. ADARTREL [Suspect]
     Indication: RESTLESS LEGS SYNDROME
     Dosage: .25MG PER DAY
     Route: 048
     Dates: start: 20060201, end: 20060501
  2. HORMONE REPLACEMENT THERAPY [Concomitant]
     Indication: MENOPAUSE
     Route: 065
  3. BISOPROLOL [Concomitant]
     Route: 065

REACTIONS (2)
  - FALL [None]
  - MUSCULAR WEAKNESS [None]
